FAERS Safety Report 18659109 (Version 1)
Quarter: 2020Q4

REPORT INFORMATION
  Report Type: Spontaneous
  Country: US (occurrence: US)
  Receive Date: 20201223
  Receipt Date: 20201223
  Transmission Date: 20210114
  Serious: Yes (Other)
  Sender: FDA-Public Use
  Company Number: US-PURDUE PHARMA-USA-2020-0191887

PATIENT
  Sex: Male

DRUGS (2)
  1. OXYCODONE HYDROCHLORIDE (SIMILAR TO NDA 22-272) [Suspect]
     Active Substance: OXYCODONE HYDROCHLORIDE
     Indication: PRODUCT USED FOR UNKNOWN INDICATION
     Dosage: 16 MG, Q6H
     Route: 048
     Dates: start: 201311, end: 201604
  2. SUBOXONE [Suspect]
     Active Substance: BUPRENORPHINE HYDROCHLORIDE\NALOXONE HYDROCHLORIDE
     Indication: MENTAL DISORDER
     Dosage: UNKNOWN
     Route: 065

REACTIONS (5)
  - Mental disorder [Not Recovered/Not Resolved]
  - Mood swings [Not Recovered/Not Resolved]
  - Tooth disorder [Not Recovered/Not Resolved]
  - Disturbance in attention [Not Recovered/Not Resolved]
  - Personality change [Not Recovered/Not Resolved]

NARRATIVE: CASE EVENT DATE: 201401
